FAERS Safety Report 7468585-9 (Version None)
Quarter: 2011Q2

REPORT INFORMATION
  Report Type: 
  Country: None (occurrence: None)
  Receive Date: 20110509
  Receipt Date: 20110429
  Transmission Date: 20111010
  Serious: Yes (Other)
  Sender: FDA-Public Use
  Company Number: IT-BAYER-2011-028247

PATIENT
  Age: 44 Year
  Sex: Female

DRUGS (4)
  1. EUTIROX [Concomitant]
     Dosage: DAILY DOSE 100 ?G
     Route: 048
  2. ASPIRIN [Concomitant]
     Dosage: DAILY DOSE 500 MG
     Route: 048
  3. AZOPT [Concomitant]
     Route: 047
  4. AVELOX [Suspect]
     Indication: TRACHEITIS
     Dosage: 400 MG, ONCE
     Route: 048
     Dates: start: 20110329, end: 20110329

REACTIONS (5)
  - EYELID OEDEMA [None]
  - NASAL OEDEMA [None]
  - LYMPHADENOPATHY [None]
  - LIP SWELLING [None]
  - URTICARIA [None]
